FAERS Safety Report 13134703 (Version 1)
Quarter: 2017Q1

REPORT INFORMATION
  Report Type: Spontaneous
  Country: NO (occurrence: NO)
  Receive Date: 20170120
  Receipt Date: 20170120
  Transmission Date: 20170428
  Serious: Yes (Hospitalization)
  Sender: FDA-Public Use
  Company Number: NO-SA-2017SA006161

PATIENT
  Age: 32 Year
  Sex: Male
  Weight: 73 kg

DRUGS (2)
  1. BETMIGA [Concomitant]
     Active Substance: MIRABEGRON
  2. LEMTRADA [Suspect]
     Active Substance: ALEMTUZUMAB
     Indication: MULTIPLE SCLEROSIS
     Route: 042
     Dates: start: 201506, end: 201606

REACTIONS (10)
  - Peripheral swelling [Unknown]
  - Pyrexia [Recovered/Resolved]
  - Nasopharyngitis [Unknown]
  - Contusion [Unknown]
  - Pain [Unknown]
  - Nasal congestion [Unknown]
  - Petechiae [Unknown]
  - Immune thrombocytopenic purpura [Recovering/Resolving]
  - Pigmentation disorder [Unknown]
  - Cough [Unknown]

NARRATIVE: CASE EVENT DATE: 201611
